FAERS Safety Report 6313516-8 (Version None)
Quarter: 2009Q3

REPORT INFORMATION
  Report Type: 
  Country: None (occurrence: None)
  Receive Date: 20090818
  Receipt Date: 20090806
  Transmission Date: 20100115
  Serious: No
  Sender: FDA-Public Use
  Company Number: US-ELI_LILLY_AND_COMPANY-US200904006056

PATIENT
  Age: 30 Year
  Sex: Male

DRUGS (4)
  1. ZYPREXA [Suspect]
     Indication: AGITATION
     Dosage: 10 MG, DAILY (1/D)
     Dates: start: 20080801, end: 20090201
  2. VICODIN [Concomitant]
     Dosage: UNK, AS NEEDED
  3. AMBIEN [Concomitant]
     Dosage: 10 MG, EACH EVENING
  4. LORAZEPAM [Concomitant]
     Dosage: 2 MG, AS NEEDED
     Dates: start: 20080101

REACTIONS (6)
  - ALANINE AMINOTRANSFERASE INCREASED [None]
  - ASPARTATE AMINOTRANSFERASE INCREASED [None]
  - BLOOD BILIRUBIN INCREASED [None]
  - NEUTROPHIL COUNT DECREASED [None]
  - OFF LABEL USE [None]
  - WHITE BLOOD CELL COUNT DECREASED [None]
